FAERS Safety Report 9075712 (Version 1)
Quarter: 2013Q1

REPORT INFORMATION
  Report Type: Spontaneous
  Country: PR (occurrence: PR)
  Receive Date: 20130131
  Receipt Date: 20130131
  Transmission Date: 20140127
  Serious: Yes (Hospitalization)
  Sender: FDA-Public Use
  Company Number: PR-ABBOTT-12P-131-1001930-00

PATIENT
  Age: 67 None
  Sex: Female
  Weight: 82.63 kg

DRUGS (9)
  1. HUMIRA [Suspect]
     Indication: RHEUMATOID ARTHRITIS
     Route: 058
     Dates: start: 200212
  2. PROVENTIL [Concomitant]
     Indication: ASTHMA
     Route: 055
  3. HUMALOG [Concomitant]
     Indication: DIABETES MELLITUS
     Dosage: 100 UNITS DAILY
     Route: 058
  4. GLUCOPHAGE [Concomitant]
     Indication: DIABETES MELLITUS
     Route: 048
  5. CLONIDINE [Concomitant]
     Indication: HYPERTENSION
     Route: 048
  6. HYDRALAZINE [Concomitant]
     Indication: HYPERTENSION
     Route: 048
  7. CARVEDILOL [Concomitant]
     Indication: HYPERTENSION
     Route: 048
  8. IRBESARTAN [Concomitant]
     Indication: HYPERTENSION
     Route: 048
  9. CARTIA [Concomitant]
     Indication: HYPERTENSION
     Route: 048

REACTIONS (3)
  - Asthma [Recovered/Resolved]
  - Oral fungal infection [Recovered/Resolved]
  - Pyrexia [Recovered/Resolved]
